FAERS Safety Report 6509106-4 (Version None)
Quarter: 2009Q4

REPORT INFORMATION
  Report Type: 
  Country: None (occurrence: None)
  Receive Date: 20091221
  Receipt Date: 20091210
  Transmission Date: 20100525
  Serious: Yes (Other)
  Sender: FDA-Public Use
  Company Number: ES-GILEAD-2009-0025760

PATIENT
  Sex: Male

DRUGS (4)
  1. TRUVADA [Suspect]
     Indication: HIV INFECTION
     Dates: start: 20060301
  2. TRUVADA [Suspect]
     Dates: start: 20050101, end: 20060101
  3. NORVIR [Concomitant]
     Dates: start: 20060301
  4. REYATAZ [Concomitant]
     Dates: start: 20060301

REACTIONS (1)
  - OSTEONECROSIS [None]
